FAERS Safety Report 7795267-6 (Version None)
Quarter: 2011Q4

REPORT INFORMATION
  Report Type: 
  Country: None (occurrence: None)
  Receive Date: 20111004
  Receipt Date: 20110927
  Transmission Date: 20120403
  Serious: Yes (Other)
  Sender: FDA-Public Use
  Company Number: US-ELI_LILLY_AND_COMPANY-US201109002540

PATIENT
  Sex: Female

DRUGS (10)
  1. BYETTA [Suspect]
     Dosage: 5 UG, QD
     Route: 058
     Dates: start: 20080425
  2. OMEPRAZOLE [Concomitant]
     Indication: DYSPEPSIA
     Dosage: 20 MG, QD
     Dates: start: 20110201
  3. NAPROSYN [Concomitant]
     Indication: ARTHRALGIA
     Dosage: 500 MG, PRN
     Dates: start: 20090113
  4. ZANTAC [Concomitant]
     Indication: HYPERSENSITIVITY
     Dosage: 10 MG, QD
     Dates: start: 20110903
  5. BYETTA [Suspect]
     Dosage: 5 UG, BID
     Route: 058
     Dates: start: 20080118, end: 20080425
  6. BYETTA [Suspect]
     Indication: TYPE 2 DIABETES MELLITUS
     Dosage: 5 UG, BID
     Route: 058
     Dates: end: 20061015
  7. ZOCOR [Concomitant]
     Indication: BLOOD CHOLESTEROL
     Dosage: 20 MG, QD
     Route: 048
     Dates: start: 20061004
  8. BYETTA [Suspect]
     Dosage: 10 UG, BID
     Route: 058
     Dates: start: 20061015, end: 20080118
  9. GLUCOPHAGE [Concomitant]
     Indication: DIABETES MELLITUS
     Dosage: 500 MG, BID
     Dates: start: 20070111
  10. LOSARTAN POTASSIUM [Concomitant]
     Indication: BLOOD PRESSURE
     Dosage: 50 MG, QD
     Dates: start: 20101008

REACTIONS (6)
  - INAPPROPRIATE SCHEDULE OF DRUG ADMINISTRATION [None]
  - CONVULSION [None]
  - HYPOPHAGIA [None]
  - DISCOMFORT [None]
  - HYPOGLYCAEMIC SEIZURE [None]
  - MUSCULOSKELETAL STIFFNESS [None]
